FAERS Safety Report 15934737 (Version 3)
Quarter: 2019Q2

REPORT INFORMATION
  Report Type: Spontaneous
  Country: DE (occurrence: DE)
  Receive Date: 20190207
  Receipt Date: 20190507
  Transmission Date: 20190711
  Serious: Yes (Hospitalization, Other)
  Sender: FDA-Public Use
  Company Number: PHHY2018DE142360

PATIENT
  Age: 82 Year
  Sex: Female
  Weight: 45 kg

DRUGS (8)
  1. REVOLADE [Suspect]
     Active Substance: ELTROMBOPAG
     Dosage: 75 MG, QD
     Route: 065
     Dates: start: 20180805, end: 20181027
  2. REVOLADE [Suspect]
     Active Substance: ELTROMBOPAG
     Dosage: 50 MG, QD
     Route: 065
     Dates: start: 20181027, end: 20181214
  3. REVOLADE [Suspect]
     Active Substance: ELTROMBOPAG
     Dosage: 25 MG, QOD
     Route: 065
     Dates: start: 20181214, end: 20190216
  4. REVOLADE [Suspect]
     Active Substance: ELTROMBOPAG
     Dosage: 25 MG, (EVERY THIRD DAY)
     Route: 065
     Dates: start: 20190217, end: 20190415
  5. NITOMAN [Concomitant]
     Active Substance: TETRABENAZINE
     Indication: URINARY TRACT INFECTION
     Dosage: 25 MG, UNK
     Route: 065
     Dates: start: 2011
  6. LYRICA [Concomitant]
     Active Substance: PREGABALIN
     Indication: URINARY TRACT INFECTION
     Dosage: 150 MG, QD
     Route: 065
     Dates: start: 2012
  7. REVOLADE [Suspect]
     Active Substance: ELTROMBOPAG
     Indication: IMMUNE THROMBOCYTOPENIC PURPURA
     Dosage: 75 MG, QD
     Route: 065
     Dates: start: 20180508, end: 20180709
  8. REVOLADE [Suspect]
     Active Substance: ELTROMBOPAG
     Dosage: 25 MG, (EVERY FOURTH DAY)
     Route: 065
     Dates: start: 20190416

REACTIONS (6)
  - Medical device pain [Not Recovered/Not Resolved]
  - Urinary tract infection [Unknown]
  - Stomatitis [Not Recovered/Not Resolved]
  - Platelet count decreased [Unknown]
  - Platelet count increased [Recovering/Resolving]
  - Product use in unapproved indication [Unknown]

NARRATIVE: CASE EVENT DATE: 201805
